FAERS Safety Report 6112233-7 (Version None)
Quarter: 2009Q1

REPORT INFORMATION
  Report Type: 
  Country: None (occurrence: None)
  Receive Date: 20090310
  Receipt Date: 20090220
  Transmission Date: 20090719
  Serious: Yes (Other)
  Sender: FDA-Public Use
  Company Number: GB-DEXPHARM-20090213

PATIENT
  Age: 71 Year
  Sex: Male

DRUGS (5)
  1. DICLOFENAC [Suspect]
     Indication: PAIN
     Dates: end: 20090101
  2. CODEINE SUL TAB [Suspect]
     Indication: PAIN
     Dates: end: 20090101
  3. MADOPAR [Suspect]
     Indication: PARKINSON'S DISEASE
     Dosage: 125 MG MILLIGRAM(S), 7 IN 1 DAY; ^PRN, UP TO 6 TABLETS^ {62.5 MG MILLIGRAM(S) }
  4. REQUIP [Suspect]
     Indication: PARKINSON'S DISEASE
     Dosage: SEE IMAGE
     Route: 048
     Dates: end: 20090128
  5. TRAMADOL HCL [Suspect]
     Indication: PAIN
     Dosage: 50 MG MILLIGRAM(S), 2 IN 1 DAY
     Dates: end: 20090101

REACTIONS (4)
  - ASTHENIA [None]
  - DYSSTASIA [None]
  - HALLUCINATION [None]
  - LETHARGY [None]
